FAERS Safety Report 5136390-4 (Version None)
Quarter: 2006Q4

REPORT INFORMATION
  Report Type: 
  Country: None (occurrence: None)
  Receive Date: 20061027
  Receipt Date: 20061006
  Transmission Date: 20070319
  Serious: Yes (Hospitalization, Disabling)
  Sender: FDA-Public Use
  Company Number: CH-BRISTOL-MYERS SQUIBB COMPANY-13540737

PATIENT
  Age: 83 Year
  Sex: Male

DRUGS (16)
  1. SINEMET CR [Suspect]
     Indication: PARKINSON'S DISEASE
     Route: 048
     Dates: start: 20030301
  2. HALDOL [Suspect]
     Indication: HALLUCINATION
     Route: 048
     Dates: start: 20060809, end: 20060809
  3. SEROQUEL [Suspect]
     Indication: HALLUCINATION
     Route: 048
     Dates: start: 20060810, end: 20060815
  4. LEPONEX [Suspect]
     Indication: HALLUCINATION
     Route: 048
     Dates: start: 20060819, end: 20060913
  5. NEURONTIN [Interacting]
     Indication: RESTLESSNESS
     Route: 048
     Dates: start: 20060814
  6. NEURONTIN [Interacting]
     Indication: AGITATION
     Route: 048
     Dates: start: 20060814
  7. EFFEXOR [Interacting]
     Indication: ANXIETY
     Route: 048
     Dates: start: 20060822
  8. EFFEXOR [Interacting]
     Indication: DEPRESSION
     Route: 048
     Dates: start: 20060822
  9. CALCIMAGON [Concomitant]
     Dates: start: 20060301
  10. FLORINEF [Concomitant]
     Dates: start: 20060815
  11. FOSAMAX [Concomitant]
     Dates: start: 20060301
  12. MOVICOL [Concomitant]
     Dates: start: 20060814
  13. MAGNESIUM [Concomitant]
     Dates: start: 20060906
  14. TRUSOPT [Concomitant]
  15. TOLTERODINE [Concomitant]
     Dates: end: 20060901
  16. FIG [Concomitant]
     Dates: start: 20060724

REACTIONS (4)
  - GAIT DISTURBANCE [None]
  - NORMOCHROMIC NORMOCYTIC ANAEMIA [None]
  - OFF LABEL USE [None]
  - STUPOR [None]
